FAERS Safety Report 9654354 (Version 2)
Quarter: 2013Q4

REPORT INFORMATION
  Report Type: Spontaneous
  Country: JP (occurrence: JP)
  Receive Date: 20131029
  Receipt Date: 20131118
  Transmission Date: 20140711
  Serious: Yes (Other)
  Sender: FDA-Public Use
  Company Number: JP-B.I. PHARMACEUTICALS,INC./RIDGEFIELD-2013-BI-34683YA

PATIENT
  Age: 8 Decade
  Sex: Male

DRUGS (3)
  1. HARNAL (TAMSULOSIN) ORODISPERSABLE CR [Suspect]
     Indication: DYSURIA
     Dosage: 0.2 MG
     Route: 048
  2. VESICARE (SOLIFENACIN) [Concomitant]
  3. EXFORGE (AMLODIPINE BESILATE, VALSARTAN) [Concomitant]
     Indication: HYPERTENSION
     Route: 065

REACTIONS (3)
  - Haematuria [Not Recovered/Not Resolved]
  - Haemorrhage urinary tract [Not Recovered/Not Resolved]
  - Dysuria [Not Recovered/Not Resolved]
